FAERS Safety Report 9146145 (Version 1)
Quarter: 2013Q1

REPORT INFORMATION
  Report Type: Spontaneous
  Country: US (occurrence: None)
  Receive Date: 20130227
  Receipt Date: 20130227
  Transmission Date: 20140127
  Serious: Yes (Other)
  Sender: FDA-Public Use
  Company Number: None

PATIENT
  Sex: Female

DRUGS (1)
  1. NTG [Suspect]
     Indication: SKIN WRINKLING
     Dosage: , TWICE, TOPICAL
     Route: 061
     Dates: start: 20130108, end: 20130109

REACTIONS (3)
  - Arrhythmia [None]
  - Product quality issue [None]
  - Product lot number issue [None]
